FAERS Safety Report 11556314 (Version 2)
Quarter: 2015Q4

REPORT INFORMATION
  Report Type: Report from Study
  Country: AU (occurrence: AU)
  Receive Date: 20150925
  Receipt Date: 20151002
  Transmission Date: 20160304
  Serious: Yes (Other)
  Sender: FDA-Public Use
  Company Number: AU-REGENERON PHARMACEUTICALS, INC.-2015-12453

PATIENT

DRUGS (14)
  1. EYLEA [Suspect]
     Active Substance: AFLIBERCEPT
     Indication: POLYPOIDAL CHOROIDAL VASCULOPATHY
     Dosage: .05 ML, QD, SCREENING
     Route: 031
     Dates: start: 20141118, end: 20141118
  2. EYLEA [Suspect]
     Active Substance: AFLIBERCEPT
     Dosage: .05 ML, QD, WEEK 4
     Route: 031
     Dates: start: 20141217, end: 20141217
  3. FISH OIL [Concomitant]
     Active Substance: FISH OIL
     Indication: SUPPLEMENTATION THERAPY
  4. VISUDYNE [Suspect]
     Active Substance: VERTEPORFIN
     Indication: POLYPOIDAL CHOROIDAL VASCULOPATHY
  5. FLUORESCEIN [Concomitant]
     Active Substance: FLUORESCEIN
     Indication: DIAGNOSTIC PROCEDURE
     Dosage: UNK
     Route: 042
     Dates: start: 20141118
  6. ALCAINE [Concomitant]
     Active Substance: PROPARACAINE HYDROCHLORIDE
     Indication: DIAGNOSTIC PROCEDURE
     Dosage: 1 GTT, UNK
     Route: 047
     Dates: start: 20141118
  7. MINIMS BENOXINATE [Concomitant]
     Indication: DIAGNOSTIC PROCEDURE
     Dosage: 1 GTT, UNK
     Route: 047
     Dates: start: 20141118
  8. EYLEA [Suspect]
     Active Substance: AFLIBERCEPT
     Dosage: .05 ML, QD, WEEK 16
     Route: 031
     Dates: start: 20150311, end: 20150311
  9. VITAMIN B COMPLEX [Concomitant]
     Active Substance: CYANOCOBALAMIN\DEXPANTHENOL\NIACINAMIDE\PYRIDOXINE HYDROCHLORIDE\RIBOFLAVIN 5^-PHOSPHATE SODIUM\THIAMINE HYDROCHLORIDE\VITAMIN B COMPLEX
     Indication: ROUTINE HEALTH MAINTENANCE
     Dosage: DAILY DOSE 30 MG
     Route: 048
     Dates: start: 2010
  10. INDOCYANINE GREEN. [Concomitant]
     Active Substance: INDOCYANINE GREEN
     Indication: DIAGNOSTIC PROCEDURE
     Dosage: 25MG IN 5ML
     Route: 042
     Dates: start: 20141118
  11. EYLEA [Suspect]
     Active Substance: AFLIBERCEPT
     Dosage: .05 ML, QD, WEEK 8
     Route: 031
     Dates: start: 20150113, end: 20150113
  12. MYDRIACYL [Concomitant]
     Active Substance: TROPICAMIDE
     Indication: DIAGNOSTIC PROCEDURE
     Dosage: 1 GTT, UNK
     Route: 047
     Dates: start: 20141118
  13. INFLUENZA VACCINE [Concomitant]
     Active Substance: INFLUENZA VIRUS VACCINE
     Indication: ANTIVIRAL PROPHYLAXIS
     Dosage: DAILY DOSE .5 ML
     Route: 042
     Dates: start: 20150404, end: 20150404
  14. EYLEA [Suspect]
     Active Substance: AFLIBERCEPT
     Dosage: .05 ML, QD, WEEK 24
     Route: 031
     Dates: start: 20150513, end: 20150513

REACTIONS (1)
  - Retinal haemorrhage [Recovered/Resolved]

NARRATIVE: CASE EVENT DATE: 20150113
